FAERS Safety Report 4420640-3 (Version None)
Quarter: 2004Q3

REPORT INFORMATION
  Report Type: 
  Country: None (occurrence: None)
  Receive Date: 20040809
  Receipt Date: 20040413
  Transmission Date: 20050211
  Serious: No
  Sender: FDA-Public Use
  Company Number: US-GLAXOSMITHKLINE-A0506933A

PATIENT
  Age: 57 Year
  Sex: Female

DRUGS (3)
  1. PAXIL [Suspect]
     Dosage: 40MG PER DAY
     Route: 048
  2. SYNTEX (NAPROSYN) [Concomitant]
  3. PREVACID [Concomitant]

REACTIONS (1)
  - GAMBLING [None]
